FAERS Safety Report 7158926-4 (Version None)
Quarter: 2010Q4

REPORT INFORMATION
  Report Type: 
  Country: None (occurrence: None)
  Receive Date: 20101214
  Receipt Date: 20101208
  Transmission Date: 20110411
  Serious: Yes (Hospitalization, Other)
  Sender: FDA-Public Use
  Company Number: JP-PFIZER INC-2010167472

PATIENT
  Age: 34 Year
  Sex: Female

DRUGS (1)
  1. GEMTUZUMAB OZOGAMICIN [Suspect]
     Indication: ACUTE MYELOID LEUKAEMIA
     Dosage: 9MG/M2 ON DAY 1 AND 15
     Dates: start: 20091201

REACTIONS (2)
  - DISSEMINATED INTRAVASCULAR COAGULATION [None]
  - VENOOCCLUSIVE LIVER DISEASE [None]
